FAERS Safety Report 7120505-2 (Version None)
Quarter: 2010Q4

REPORT INFORMATION
  Report Type: 
  Country: None (occurrence: None)
  Receive Date: 20101119
  Receipt Date: 20101119
  Transmission Date: 20110411
  Serious: Yes (Life-Threatening)
  Sender: FDA-Public Use
  Company Number: None

PATIENT
  Age: 52 Year
  Sex: Female

DRUGS (4)
  1. CADUET [Suspect]
     Indication: BLOOD CHOLESTEROL INCREASED
     Dosage: 10/20 MG DAILY
     Dates: start: 20051216
  2. CADUET [Suspect]
     Indication: HYPERTENSION
     Dosage: 10/20 MG DAILY
     Dates: start: 20051216
  3. CADUET [Suspect]
     Indication: BLOOD CHOLESTEROL INCREASED
     Dosage: 10/20 MG DAILY
     Dates: start: 20051218
  4. CADUET [Suspect]
     Indication: HYPERTENSION
     Dosage: 10/20 MG DAILY
     Dates: start: 20051218

REACTIONS (1)
  - CARDIAC DISORDER [None]
